FAERS Safety Report 9496239 (Version 2)
Quarter: 2013Q3

REPORT INFORMATION
  Report Type: Report from Study
  Country: CN (occurrence: CN)
  Receive Date: 20130904
  Receipt Date: 20130911
  Transmission Date: 20140515
  Serious: Yes (Hospitalization)
  Sender: FDA-Public Use
  Company Number: CN-ASTRAZENECA-2013SE67026

PATIENT
  Age: 13887 Day
  Sex: Male

DRUGS (21)
  1. ESOMEPRAZOLE SODIUM [Suspect]
     Indication: HAEMOSTASIS
     Route: 040
     Dates: start: 20130710, end: 20130710
  2. NEXIUM (IV) CODE NOT BROKEN [Suspect]
     Indication: HAEMORRHAGE PROPHYLAXIS
     Route: 040
     Dates: start: 20130710, end: 20130710
  3. NEXIUM (IV) CODE NOT BROKEN [Suspect]
     Indication: HAEMORRHAGE PROPHYLAXIS
     Route: 041
     Dates: start: 20130710, end: 20130711
  4. NEXIUM (IV) CODE NOT BROKEN [Suspect]
     Indication: HAEMORRHAGE PROPHYLAXIS
     Route: 041
     Dates: start: 20130711, end: 20130711
  5. NEXIUM (IV) CODE NOT BROKEN [Suspect]
     Indication: HAEMORRHAGE PROPHYLAXIS
     Route: 041
     Dates: start: 20130711, end: 20130712
  6. NEXIUM (IV) CODE NOT BROKEN [Suspect]
     Indication: HAEMORRHAGE PROPHYLAXIS
     Route: 041
     Dates: start: 20130712, end: 20130712
  7. NEXIUM (IV) CODE NOT BROKEN [Suspect]
     Indication: HAEMORRHAGE PROPHYLAXIS
     Route: 041
     Dates: start: 20130712, end: 20130712
  8. NEXIUM (IV) CODE NOT BROKEN [Suspect]
     Indication: HAEMORRHAGE PROPHYLAXIS
     Route: 041
     Dates: start: 20130712, end: 20130713
  9. NEXIUM (IV) CODE NOT BROKEN [Suspect]
     Indication: HAEMORRHAGE PROPHYLAXIS
     Route: 041
     Dates: start: 20130713, end: 20130713
  10. NEXIUM (IV) CODE NOT BROKEN [Suspect]
     Indication: HAEMORRHAGE PROPHYLAXIS
     Route: 041
     Dates: start: 20130713, end: 20130713
  11. NEXIUM [Suspect]
     Indication: HAEMORRHAGE PROPHYLAXIS
     Route: 048
     Dates: start: 20130714
  12. OMEPRAZOLE [Concomitant]
     Route: 042
     Dates: start: 20130709, end: 20130710
  13. HEMOCOAGULASE [Concomitant]
     Dosage: 2 KU DAILY
     Route: 042
     Dates: start: 20130709, end: 20130709
  14. SOMATOSTATIN [Concomitant]
     Route: 042
     Dates: start: 20130709, end: 20130709
  15. DICYNONE [Concomitant]
     Route: 042
     Dates: start: 20130709, end: 20130710
  16. VITAMIN K1 [Concomitant]
     Indication: VITAMIN SUPPLEMENTATION
     Route: 042
     Dates: start: 20130709, end: 20130710
  17. COMPOUND AMINO ACID [Concomitant]
     Route: 042
     Dates: start: 20130709, end: 20130710
  18. FAT EMULSION [Concomitant]
     Route: 042
     Dates: start: 20130709, end: 20130709
  19. NOREPINEPHRINE [Concomitant]
     Route: 042
     Dates: start: 20130709, end: 20130710
  20. GLUTATHIONE [Concomitant]
     Route: 042
     Dates: start: 20130709, end: 20130710
  21. AGKISTRODON SNAKE VENOM HEMOCOAGULASE [Concomitant]
     Dosage: 2 KU DAILY
     Route: 042
     Dates: start: 20130710, end: 20130710

REACTIONS (1)
  - Duodenal ulcer haemorrhage [Recovered/Resolved]
